FAERS Safety Report 11226157 (Version 1)
Quarter: 2015Q2

REPORT INFORMATION
  Report Type: Spontaneous
  Country: JP (occurrence: JP)
  Receive Date: 20150629
  Receipt Date: 20150629
  Transmission Date: 20150821
  Serious: Yes (Hospitalization, Other)
  Sender: FDA-Public Use
  Company Number: JP-CELGENE-JPN-2015050072

PATIENT
  Age: 71 Year
  Sex: Male
  Weight: 55 kg

DRUGS (5)
  1. MAXIPIME [Concomitant]
     Active Substance: CEFEPIME HYDROCHLORIDE
     Indication: PRODUCT USED FOR UNKNOWN INDICATION
     Dosage: 4-6 GRAMS
     Route: 065
     Dates: start: 20150216, end: 20150302
  2. CEFMETAZOLE [Concomitant]
     Active Substance: CEFMETAZOLE
     Indication: PRODUCT USED FOR UNKNOWN INDICATION
     Route: 065
     Dates: start: 20150212, end: 20150216
  3. FILGRASTIM [Concomitant]
     Active Substance: FILGRASTIM
     Indication: PRODUCT USED FOR UNKNOWN INDICATION
     Route: 065
     Dates: start: 20150216
  4. ABRAXANE [Suspect]
     Active Substance: PACLITAXEL
     Indication: PANCREATIC CARCINOMA METASTATIC
     Dosage: 190 MILLIGRAM
     Route: 041
     Dates: start: 20150209, end: 20150209
  5. GEMCITABINE [Suspect]
     Active Substance: GEMCITABINE\GEMCITABINE HYDROCHLORIDE
     Indication: PANCREATIC CARCINOMA METASTATIC
     Dosage: 1500 MILLIGRAM
     Route: 041
     Dates: start: 20150209, end: 20150209

REACTIONS (3)
  - Tumour associated fever [Recovering/Resolving]
  - Somnolence [Recovering/Resolving]
  - Neutrophil count decreased [Recovered/Resolved]

NARRATIVE: CASE EVENT DATE: 20150216
